FAERS Safety Report 14390765 (Version 2)
Quarter: 2018Q2

REPORT INFORMATION
  Report Type: Report from Study
  Country: None (occurrence: TR)
  Receive Date: 20180116
  Receipt Date: 20180417
  Transmission Date: 20180711
  Serious: Yes (Hospitalization)
  Sender: FDA-Public Use
  Company Number: TR-ABBVIE-18K-161-2221617-00

PATIENT
  Age: 57 Year
  Sex: Female
  Weight: 96 kg

DRUGS (15)
  1. DUODOPA [Suspect]
     Active Substance: CARBIDOPA\LEVODOPA
     Indication: PARKINSON^S DISEASE
     Dosage: MORNING DOSE(ML):6.00?CONTINOUS DOSE(ML):3.20?EXTRA DOSE(ML):1.00
     Route: 050
     Dates: start: 20180110, end: 20180112
  2. DUODOPA [Suspect]
     Active Substance: CARBIDOPA\LEVODOPA
     Dosage: MORNING DOSE(ML):6.00?CONTINOUS DOSE(ML):3.20?EXTRA DOSE(ML):1.00
     Route: 050
     Dates: start: 20180115
  3. MADOPAR HBS [Concomitant]
     Active Substance: BENSERAZIDE HYDROCHLORIDE\LEVODOPA
     Indication: PARKINSON^S DISEASE
     Dosage: FREQUENCY TEXT : 1X2
     Dates: start: 2013
  4. FOLBIOL [Concomitant]
     Active Substance: FOLIC ACID
     Indication: BLOOD FOLATE
     Dates: start: 20180106
  5. NOVOMIX [Concomitant]
     Active Substance: INSULIN ASPART
     Indication: DIABETES MELLITUS
     Route: 058
  6. BEVITAB [Concomitant]
     Indication: VITAMIN SUPPLEMENTATION
     Route: 048
     Dates: start: 20180106
  7. DEVIT [Concomitant]
     Indication: VITAMIN SUPPLEMENTATION
     Dosage: FREQUENCY TEXT : 1X7
     Route: 048
     Dates: start: 20180106
  8. DUODOPA [Suspect]
     Active Substance: CARBIDOPA\LEVODOPA
     Dosage: MORNING DOSE(ML):6.00?CONTINOUS DOSE(ML):3.30?EXTRA DOSE(ML):1.00
     Route: 050
     Dates: start: 20180112, end: 20180115
  9. OLMETEC [Concomitant]
     Active Substance: OLMESARTAN MEDOXOMIL
     Indication: HYPERTENSION
     Route: 048
  10. LANSOR [Concomitant]
     Active Substance: LANSOPRAZOLE
     Indication: PROPHYLAXIS
     Route: 048
     Dates: start: 20180106
  11. GLIFOR [Concomitant]
     Active Substance: METFORMIN HYDROCHLORIDE
     Indication: DIABETES MELLITUS
     Route: 048
     Dates: start: 2013
  12. DEVIT [Concomitant]
     Dosage: 1X2
  13. SANELOC [Concomitant]
     Active Substance: METOPROLOL
     Indication: ARRHYTHMIA
     Route: 048
     Dates: start: 2013
  14. PEXOLA [Concomitant]
     Active Substance: PRAMIPEXOLE DIHYDROCHLORIDE
     Indication: PARKINSON^S DISEASE
     Dosage: FREQUENCY TEXT : 1X3/2
     Route: 048
     Dates: start: 2013
  15. BEVITAB [Concomitant]
     Dosage: 1X2

REACTIONS (4)
  - Abdominal pain [Recovered/Resolved]
  - C-reactive protein increased [Recovered/Resolved]
  - Vomiting [Recovered/Resolved]
  - Stoma site discharge [Recovered/Resolved]

NARRATIVE: CASE EVENT DATE: 20180110
